FAERS Safety Report 6191171-8 (Version None)
Quarter: 2009Q2

REPORT INFORMATION
  Report Type: 
  Country: None (occurrence: None)
  Receive Date: 20090513
  Receipt Date: 20090513
  Transmission Date: 20091009
  Serious: Yes (Hospitalization)
  Sender: FDA-Public Use
  Company Number: None

PATIENT
  Age: 87 Year
  Sex: Male

DRUGS (1)
  1. DIGOXIN [Suspect]
     Indication: ATRIAL FIBRILLATION
     Dosage: 0.125 MG EVERY DAY PO
     Route: 048
     Dates: start: 20090317, end: 20090505

REACTIONS (5)
  - BLOOD POTASSIUM INCREASED [None]
  - BRADYCARDIA [None]
  - DIZZINESS [None]
  - PALPITATIONS [None]
  - THERAPEUTIC AGENT TOXICITY [None]
